FAERS Safety Report 10454969 (Version 3)
Quarter: 2014Q4

REPORT INFORMATION
  Report Type: Report from Study
  Country: MX (occurrence: MX)
  Receive Date: 20140915
  Receipt Date: 20141001
  Transmission Date: 20150528
  Serious: Yes (Other)
  Sender: FDA-Public Use
  Company Number: PHHY2012MX060639

PATIENT
  Age: 64 Year
  Sex: Female

DRUGS (3)
  1. ACLASTA [Suspect]
     Active Substance: ZOLEDRONIC ACID
     Indication: OSTEOPOROSIS
     Dosage: 1 APPLICATION (5MG/100 ML) EACH YEAR
     Route: 042
     Dates: start: 201007
  2. ACLASTA [Suspect]
     Active Substance: ZOLEDRONIC ACID
     Indication: PATHOLOGICAL FRACTURE
  3. VERAPAMIL [Concomitant]
     Active Substance: VERAPAMIL HYDROCHLORIDE
     Indication: HYPERTENSION
     Dosage: 0.5 UKN, UNK
     Dates: start: 2000

REACTIONS (6)
  - Fall [Recovered/Resolved]
  - Ear pain [Not Recovered/Not Resolved]
  - Haemarthrosis [Recovered/Resolved]
  - Hypoacusis [Not Recovered/Not Resolved]
  - Joint injury [Recovered/Resolved]
  - Breast cancer [Recovered/Resolved]

NARRATIVE: CASE EVENT DATE: 201306
